FAERS Safety Report 20165327 (Version 1)
Quarter: 2021Q4

REPORT INFORMATION
  Report Type: Spontaneous
  Country: US (occurrence: None)
  Receive Date: 20211208
  Receipt Date: 20211208
  Transmission Date: 20220303
  Serious: Yes (Hospitalization)
  Sender: FDA-Public Use
  Company Number: None

PATIENT
  Sex: Male

DRUGS (1)
  1. XGEVA [Suspect]
     Active Substance: DENOSUMAB
     Indication: Plasma cell myeloma
     Dosage: OTHER QUANTITY : 1.7ML;?FREQUENCY : MONTHLY;?
     Route: 058
     Dates: start: 202101

REACTIONS (2)
  - Bone marrow transplant [None]
  - Therapy interrupted [None]
